FAERS Safety Report 9540368 (Version 1)
Quarter: 2013Q3

REPORT INFORMATION
  Report Type: Spontaneous
  Country: JP (occurrence: JP)
  Receive Date: 20130920
  Receipt Date: 20130920
  Transmission Date: 20140515
  Serious: Yes (Other)
  Sender: FDA-Public Use
  Company Number: JP-MERCK-1309JPN007980

PATIENT
  Age: 77 Year
  Sex: Female

DRUGS (6)
  1. GLACTIV [Suspect]
     Indication: TYPE 2 DIABETES MELLITUS
     Dosage: 50 MG, QD
     Route: 048
     Dates: start: 201307
  2. THYRADIN [Concomitant]
  3. BAYASPIRIN [Concomitant]
  4. TAKEPRON [Concomitant]
  5. BLOPRESS [Concomitant]
  6. ATELEC [Concomitant]

REACTIONS (3)
  - Hypoglycaemia [Recovered/Resolved]
  - Feeling abnormal [Recovered/Resolved]
  - Urinary incontinence [Recovered/Resolved]
